FAERS Safety Report 12165988 (Version 2)
Quarter: 2016Q1

REPORT INFORMATION
  Report Type: Spontaneous
  Country: US (occurrence: US)
  Receive Date: 20160309
  Receipt Date: 20160310
  Transmission Date: 20160526
  Serious: No
  Sender: FDA-Public Use
  Company Number: US-BAYER-2016-046429

PATIENT
  Age: 35 Year
  Sex: Female

DRUGS (1)
  1. MIRENA [Suspect]
     Active Substance: LEVONORGESTREL
     Indication: HAEMORRHAGE
     Dosage: 20 MCG/24HR, CONT
     Route: 015
     Dates: start: 20160303, end: 20160304

REACTIONS (8)
  - Urticaria [None]
  - Peripheral swelling [None]
  - Burning sensation [None]
  - Rash generalised [None]
  - Erythema [None]
  - Throat irritation [None]
  - Oral pruritus [None]
  - Peripheral swelling [None]

NARRATIVE: CASE EVENT DATE: 2016
